FAERS Safety Report 6143784-7 (Version None)
Quarter: 2009Q2

REPORT INFORMATION
  Report Type: 
  Country: None (occurrence: None)
  Receive Date: 20090403
  Receipt Date: 20090326
  Transmission Date: 20091009
  Serious: Yes (Other)
  Sender: FDA-Public Use
  Company Number: PHHY2009CA04206

PATIENT
  Sex: Male

DRUGS (4)
  1. CLOZARIL [Suspect]
     Indication: SCHIZOPHRENIA
     Dosage: 25 MG, BID
     Route: 048
     Dates: start: 20090128, end: 20090129
  2. ZYPREXA [Concomitant]
  3. EPIVAL [Concomitant]
  4. KEMADRIN [Concomitant]

REACTIONS (2)
  - ABASIA [None]
  - DRUG INTOLERANCE [None]
